FAERS Safety Report 25430162 (Version 1)
Quarter: 2025Q2

REPORT INFORMATION
  Report Type: Report from Study
  Country: US (occurrence: US)
  Receive Date: 20250612
  Receipt Date: 20250612
  Transmission Date: 20250717
  Serious: No
  Sender: SANDOZ
  Company Number: US-SANDOZ-SDZ2024US011081

PATIENT
  Sex: Female

DRUGS (2)
  1. OMNITROPE [Suspect]
     Active Substance: SOMATROPIN
     Indication: Short stature
     Dosage: 1.4 MG, QD, 10 MG/1.5 ML SOLUTION FOR INJECTION IN CARTRIDGE
     Route: 058
     Dates: start: 20240201
  2. OMNITROPE [Suspect]
     Active Substance: SOMATROPIN
     Indication: Short stature
     Dosage: 1.4 MG, QD, 10 MG/1.5 ML SOLUTION FOR INJECTION IN CARTRIDGE
     Route: 058
     Dates: start: 20240201

REACTIONS (2)
  - Injection site haemorrhage [Unknown]
  - Device breakage [Unknown]
